FAERS Safety Report 7099143-6 (Version None)
Quarter: 2010Q4

REPORT INFORMATION
  Report Type: 
  Country: None (occurrence: None)
  Receive Date: 20101112
  Receipt Date: 20101104
  Transmission Date: 20110411
  Serious: Yes (Other)
  Sender: FDA-Public Use
  Company Number: B0684173A

PATIENT

DRUGS (2)
  1. VALTREX [Suspect]
     Indication: HERPES VIRUS INFECTION
     Dosage: 500MG THREE TIMES PER DAY
     Dates: start: 20100828, end: 20100901
  2. VERMOX [Suspect]
     Indication: ENTEROBIASIS
     Dosage: 100MG PER DAY
     Dates: start: 20100823, end: 20100823

REACTIONS (2)
  - DELIVERY [None]
  - DRUG EXPOSURE DURING PREGNANCY [None]
